FAERS Safety Report 4811582-X (Version None)
Quarter: 2005Q4

REPORT INFORMATION
  Report Type: 
  Country: None (occurrence: None)
  Receive Date: 20051025
  Receipt Date: 20051013
  Transmission Date: 20060501
  Serious: Yes (Other)
  Sender: FDA-Public Use
  Company Number: 12373

PATIENT
  Age: 17 Year
  Sex: Male
  Weight: 60 kg

DRUGS (2)
  1. METHOTREXATE [Suspect]
     Indication: LYMPHOCYTIC INFILTRATION
     Dosage: 12.5 MG IT
     Route: 037
     Dates: start: 20050303
  2. CYTARABINE [Suspect]
     Dosage: 50 MG IT
     Route: 037
     Dates: start: 20050303

REACTIONS (1)
  - MYELOPATHY [None]
